FAERS Safety Report 9551973 (Version 1)
Quarter: 2013Q3

REPORT INFORMATION
  Report Type: Spontaneous
  Country: US (occurrence: None)
  Receive Date: 20130923
  Receipt Date: 20130923
  Transmission Date: 20140515
  Serious: Yes (Life-Threatening, Hospitalization)
  Sender: FDA-Public Use
  Company Number: None

PATIENT
  Age: 43 Year
  Sex: Female

DRUGS (16)
  1. MIRENA [Suspect]
     Indication: CONTRACEPTION
     Dosage: INSERT IUD, VAGINAL
     Route: 067
  2. APAP [Concomitant]
  3. CYLCOBENZAPRINE [Concomitant]
  4. DICLOMINE [Concomitant]
  5. FLUOXETINE [Concomitant]
  6. GLIPIZIDE [Concomitant]
  7. HYDROCODONE/APAP [Concomitant]
  8. LISINOPRIL [Concomitant]
  9. LORAZEPAM [Concomitant]
  10. PEG [Concomitant]
  11. PRAZOSIN [Concomitant]
  12. SIMVASTATIN [Concomitant]
  13. SPIRONOLACTONE [Concomitant]
  14. TRAZODONE [Concomitant]
  15. ARIPIPRAZOLE [Concomitant]
  16. GABAPENTIN [Concomitant]

REACTIONS (3)
  - Myocardial infarction [None]
  - Deep vein thrombosis [None]
  - Pulmonary embolism [None]
